FAERS Safety Report 20159452 (Version 1)
Quarter: 2021Q4

REPORT INFORMATION
  Report Type: Report from Study
  Country: US (occurrence: US)
  Receive Date: 20211208
  Receipt Date: 20211208
  Transmission Date: 20220304
  Serious: Yes (Other)
  Sender: FDA-Public Use
  Company Number: US-KOREA IPSEN Pharma-2021-30697

PATIENT
  Age: 58 Year
  Sex: Female

DRUGS (1)
  1. SOMATULINE DEPOT [Suspect]
     Active Substance: LANREOTIDE ACETATE
     Indication: Carcinoid tumour
     Dosage: 90 MG/0.3 ML
     Route: 058
     Dates: start: 2016

REACTIONS (9)
  - Ovarian neoplasm [Recovered/Resolved]
  - Pelvic neoplasm [Recovered/Resolved]
  - Cholecystectomy [Recovered/Resolved]
  - Gastrointestinal disorder [Unknown]
  - Blood glucose decreased [Unknown]
  - Weight decreased [Unknown]
  - Feeling cold [Not Recovered/Not Resolved]
  - Alopecia [Not Recovered/Not Resolved]
  - Injection site pain [Recovered/Resolved]

NARRATIVE: CASE EVENT DATE: 20190101
